FAERS Safety Report 5481566-X (Version None)
Quarter: 2007Q4

REPORT INFORMATION
  Report Type: 
  Country: None (occurrence: None)
  Receive Date: 20071010
  Receipt Date: 20070926
  Transmission Date: 20080405
  Serious: Yes (Life-Threatening, Hospitalization)
  Sender: FDA-Public Use
  Company Number: GB-RANBAXY-2007RR-08679

PATIENT

DRUGS (3)
  1. LISINOPRIL [Suspect]
     Indication: HYPERTENSION
     Dosage: 25 MG, QD
     Route: 048
  2. LIDOCAINE HYDROCHLORIDE [Suspect]
     Route: 061
  3. PHENYLEPHRINE [Concomitant]
     Dosage: UNK
     Route: 061

REACTIONS (7)
  - ANGIOEDEMA [None]
  - CONVULSION [None]
  - OBSTRUCTIVE AIRWAYS DISORDER [None]
  - PULSE ABSENT [None]
  - RENAL FAILURE ACUTE [None]
  - RESPIRATORY ARREST [None]
  - RESTLESSNESS [None]
